FAERS Safety Report 7507938-7 (Version None)
Quarter: 2011Q2

REPORT INFORMATION
  Report Type: 
  Country: None (occurrence: None)
  Receive Date: 20110527
  Receipt Date: 20110512
  Transmission Date: 20111010
  Serious: Yes (Hospitalization)
  Sender: FDA-Public Use
  Company Number: FR-JNJFOC-20110506609

PATIENT
  Sex: Male
  Weight: 83 kg

DRUGS (16)
  1. ACETAMINOPHEN [Concomitant]
     Indication: PAIN
  2. DEBRIDAT [Concomitant]
  3. ALUMINUM HYDROXIDE AND MAGNESIUM TRISILICATE [Concomitant]
     Indication: DIARRHOEA
     Dosage: X4/DAY FOR DIARRHEA
  4. ATARAX [Concomitant]
     Dosage: 25 MG ON DEMAND
  5. REMICADE [Suspect]
     Dosage: 1ST DOSE
     Route: 042
     Dates: start: 20100920
  6. PENTASA [Concomitant]
     Indication: COLITIS ULCERATIVE
     Route: 048
     Dates: start: 20101209
  7. PENTASA [Concomitant]
     Route: 054
     Dates: start: 20101209
  8. REMICADE [Suspect]
     Indication: COLITIS ULCERATIVE
     Route: 042
     Dates: end: 20110125
  9. TRAMADOL HCL [Concomitant]
  10. SPASFON [Concomitant]
  11. EFFEXOR [Concomitant]
  12. HYDROCORTISONE [Concomitant]
     Indication: COLITIS ULCERATIVE
     Route: 048
     Dates: start: 20101031
  13. REMICADE [Suspect]
     Route: 042
     Dates: start: 20101102
  14. REMICADE [Suspect]
     Route: 042
     Dates: start: 20101219
  15. REMICADE [Suspect]
     Route: 042
  16. XANAX [Concomitant]

REACTIONS (2)
  - ANXIETY [None]
  - COLITIS ULCERATIVE [None]
